FAERS Safety Report 9109150 (Version 2)
Quarter: 2013Q2

REPORT INFORMATION
  Report Type: Report from Study
  Country: NL (occurrence: NL)
  Receive Date: 20130222
  Receipt Date: 20130429
  Transmission Date: 20140414
  Serious: Yes (Death)
  Sender: FDA-Public Use
  Company Number: PHHY2013NL017281

PATIENT
  Sex: Female

DRUGS (7)
  1. ACLASTA [Suspect]
     Indication: OSTEOPENIA
     Dosage: 5 MG, ONCE A YEAR
     Route: 042
     Dates: start: 20120217
  2. ACLASTA [Suspect]
     Dosage: 5 MG, ONCE A YEAR
     Route: 042
     Dates: start: 20121011
  3. RISPERDAL [Concomitant]
     Dosage: 1 MG,  (2DD1)
  4. ENALAPRIL [Concomitant]
     Dosage: 20 MG, UNK
  5. VITAMIN C [Concomitant]
     Dosage: 1 DF, QD (1DD1)
  6. VITAMIN B12 [Concomitant]
     Dosage: 1X PER MONTH
  7. ASCORBIC ACID [Concomitant]
     Dosage: 500 MG (1DD1)

REACTIONS (4)
  - Dementia with Lewy bodies [Fatal]
  - Fall [Fatal]
  - Acetabulum fracture [Fatal]
  - Inappropriate schedule of drug administration [Unknown]
